FAERS Safety Report 7621985-6 (Version None)
Quarter: 2011Q3

REPORT INFORMATION
  Report Type: 
  Country: None (occurrence: None)
  Receive Date: 20110720
  Receipt Date: 20110715
  Transmission Date: 20111222
  Serious: Yes (Hospitalization, Other)
  Sender: FDA-Public Use
  Company Number: ES-BRISTOL-MYERS SQUIBB COMPANY-15908775

PATIENT
  Age: 47 Year
  Sex: Male

DRUGS (2)
  1. ENALAPRIL MALEATE [Interacting]
     Dosage: TABS
     Route: 048
     Dates: start: 20060901, end: 20110520
  2. IRBESARTAN [Suspect]
     Dosage: APROVEL 150MG 28 COMPRIMIDOS RECUBIERTOS
     Route: 048
     Dates: start: 20100301, end: 20110520

REACTIONS (3)
  - URINE OUTPUT DECREASED [None]
  - DRUG INTERACTION [None]
  - RENAL IMPAIRMENT [None]
